FAERS Safety Report 9417236 (Version 1)
Quarter: 2013Q3

REPORT INFORMATION
  Report Type: Spontaneous
  Country: US (occurrence: US)
  Receive Date: 20130724
  Receipt Date: 20130724
  Transmission Date: 20140515
  Serious: No
  Sender: FDA-Public Use
  Company Number: US-BAUSCH-BL-2013-003022

PATIENT
  Age: 71 Year
  Sex: Male

DRUGS (2)
  1. OPCON-A [Suspect]
     Indication: EYE ALLERGY
     Dosage: 2 DROPS IN EACH EYE, ONCE DAILY
     Route: 047
     Dates: end: 201305
  2. OPCON-A [Suspect]
     Indication: OCULAR HYPERAEMIA

REACTIONS (2)
  - Eye pruritus [Recovered/Resolved]
  - Drug ineffective [Recovered/Resolved]
